FAERS Safety Report 16544167 (Version 1)
Quarter: 2019Q3

REPORT INFORMATION
  Report Type: Spontaneous
  Country: US (occurrence: US)
  Receive Date: 20190528
  Receipt Date: 20190528
  Transmission Date: 20191004
  Serious: Yes (Hospitalization, Disabling)
  Sender: FDA-Public Use
  Company Number: None

PATIENT
  Age: 45 Year
  Sex: Male
  Weight: 115.67 kg

DRUGS (5)
  1. CIPRO [Suspect]
     Active Substance: CIPROFLOXACIN HYDROCHLORIDE
     Indication: DIVERTICULITIS
     Dosage: ?          OTHER FREQUENCY:IV FOR 5-DAYS W/XX;?
     Route: 042
  2. LIPITOR [Concomitant]
     Active Substance: ATORVASTATIN CALCIUM
  3. PRILOSEC [Concomitant]
     Active Substance: OMEPRAZOLE MAGNESIUM
  4. BYSTOLIC [Concomitant]
     Active Substance: NEBIVOLOL HYDROCHLORIDE
  5. FLAGYL [Suspect]
     Active Substance: METRONIDAZOLE\METRONIDAZOLE HYDROCHLORIDE

REACTIONS (12)
  - Body temperature decreased [None]
  - Anxiety [None]
  - Neuropathy peripheral [None]
  - Feeling abnormal [None]
  - Angina pectoris [None]
  - Muscular weakness [None]
  - Hypoaesthesia [None]
  - Small intestinal obstruction [None]
  - Back pain [None]
  - Pain [None]
  - Hypovitaminosis [None]
  - Depression [None]

NARRATIVE: CASE EVENT DATE: 20181129
